FAERS Safety Report 5851696-9 (Version None)
Quarter: 2008Q3

REPORT INFORMATION
  Report Type: 
  Country: None (occurrence: None)
  Receive Date: 20080820
  Receipt Date: 20080731
  Transmission Date: 20090109
  Serious: No
  Sender: FDA-Public Use
  Company Number: US-BOEHRINGER INGELHEIM GMBH, GERMANY-2008-BP-12063BP

PATIENT
  Sex: Male
  Weight: 61 kg

DRUGS (8)
  1. COMBIVENT [Suspect]
     Indication: COUGH
     Dosage: AS REQUIRED
     Route: 055
     Dates: start: 20020101, end: 20080701
  2. COMBIVENT [Suspect]
     Indication: ASTHMA
  3. PERCOCET [Concomitant]
     Indication: PAIN
     Dosage: 1 TO 2 TABLETS
     Route: 048
     Dates: start: 20080701
  4. MEDICATION FOR THYROID [Concomitant]
     Indication: HYPOTHYROIDISM
     Dosage: 1.5 TABLET
     Route: 048
     Dates: start: 19520101
  5. MODURETIC 5-50 [Concomitant]
     Indication: HYPERTENSION
     Dosage: 5/50, DAILY
     Route: 048
     Dates: start: 20050101
  6. MULTI-VITAMINS [Concomitant]
     Indication: SUPPLEMENTATION THERAPY
  7. PREVACID [Concomitant]
     Indication: GASTROOESOPHAGEAL REFLUX DISEASE
     Route: 048
     Dates: start: 20050101
  8. PREVACID [Concomitant]
     Indication: OESOPHAGITIS

REACTIONS (5)
  - COGNITIVE DISORDER [None]
  - FEELING ABNORMAL [None]
  - INSOMNIA [None]
  - MALAISE [None]
  - TREATMENT NONCOMPLIANCE [None]
